FAERS Safety Report 5847970-2 (Version None)
Quarter: 2008Q3

REPORT INFORMATION
  Report Type: 
  Country: None (occurrence: None)
  Receive Date: 20080818
  Receipt Date: 20080808
  Transmission Date: 20090109
  Serious: Yes (Hospitalization)
  Sender: FDA-Public Use
  Company Number: US-ABBOTT-08P-163-0469812-00

PATIENT
  Sex: Female

DRUGS (2)
  1. HUMIRA [Suspect]
     Indication: PSORIASIS
  2. INFLIXIMAB [Suspect]
     Indication: PSORIASIS
     Dosage: THE PATIENT HAD 2 DOSES OF INFLIXIMAB
     Route: 042

REACTIONS (1)
  - DERMATITIS EXFOLIATIVE [None]
